FAERS Safety Report 18029155 (Version 1)
Quarter: 2020Q3

REPORT INFORMATION
  Report Type: Spontaneous
  Country: MX (occurrence: MX)
  Receive Date: 20200715
  Receipt Date: 20200715
  Transmission Date: 20201103
  Serious: Yes (Death, Other)
  Sender: FDA-Public Use
  Company Number: MX-GILEAD-2020-0473939

PATIENT
  Age: 52 Year
  Sex: Male
  Weight: 78.8 kg

DRUGS (1)
  1. BIKTARVY [Suspect]
     Active Substance: BICTEGRAVIR SODIUM\EMTRICITABINE\TENOFOVIR ALAFENAMIDE FUMARATE
     Indication: HIV INFECTION
     Dosage: 1 DOSAGE FORM, QD
     Route: 048
     Dates: start: 20200110

REACTIONS (5)
  - Thrombocytopenia [Fatal]
  - Blood lactate dehydrogenase increased [Not Recovered/Not Resolved]
  - Acute abdomen [Unknown]
  - Haemoglobin decreased [Unknown]
  - Injury [Unknown]

NARRATIVE: CASE EVENT DATE: 202006
